FAERS Safety Report 14022316 (Version 1)
Quarter: 2017Q3

REPORT INFORMATION
  Report Type: Spontaneous
  Country: US (occurrence: US)
  Receive Date: 20170928
  Receipt Date: 20170928
  Transmission Date: 20171128
  Serious: No
  Sender: FDA-Public Use
  Company Number: US-DRREDDYS-USA/USA/17/0087287

PATIENT
  Sex: Male
  Weight: 75.7 kg

DRUGS (4)
  1. AMOXICILLIN. [Suspect]
     Active Substance: AMOXICILLIN
     Indication: VISUAL IMPAIRMENT
     Route: 065
  2. VALSARTAN. [Suspect]
     Active Substance: VALSARTAN
     Indication: PRODUCT USED FOR UNKNOWN INDICATION
     Route: 065
     Dates: start: 20170120
  3. AMOXICILLIN. [Suspect]
     Active Substance: AMOXICILLIN
     Indication: HEADACHE
  4. AMOXICILLIN. [Suspect]
     Active Substance: AMOXICILLIN
     Indication: CEREBRAL DISORDER

REACTIONS (2)
  - Incorrect drug administration duration [Unknown]
  - Tinnitus [Recovered/Resolved]
